FAERS Safety Report 6753503-9 (Version None)
Quarter: 2010Q2

REPORT INFORMATION
  Report Type: 
  Country: None (occurrence: None)
  Receive Date: 20100603
  Receipt Date: 20100503
  Transmission Date: 20101027
  Serious: No
  Sender: FDA-Public Use
  Company Number: US-BAYER-201015183BCC

PATIENT
  Sex: Male

DRUGS (3)
  1. ALEVE (CAPLET) [Suspect]
     Indication: LIMB DISCOMFORT
     Route: 048
  2. ALEVE [Suspect]
     Indication: LIMB DISCOMFORT
     Route: 048
  3. ALEVE [Concomitant]
     Indication: LIMB DISCOMFORT
     Dosage: UNIT DOSE: 220 MG
     Route: 048

REACTIONS (1)
  - LIMB DISCOMFORT [None]
